FAERS Safety Report 4957103-2 (Version None)
Quarter: 2006Q1

REPORT INFORMATION
  Report Type: 
  Country: None (occurrence: None)
  Receive Date: 20060323
  Receipt Date: 20060315
  Transmission Date: 20060701
  Serious: Yes (Other)
  Sender: FDA-Public Use
  Company Number: 2006037465

PATIENT
  Age: 79 Year
  Sex: Male
  Weight: 70.7611 kg

DRUGS (5)
  1. LIPITOR [Suspect]
     Indication: HEART RATE ABNORMAL
     Dosage: 20 MG (20 MG, 1 IN 1 D)
  2. TAMSULOSIN HCL [Concomitant]
  3. ADVAIR DISKUS (FLUTICASONE PROPIONATE, SALMETEROL XINAFOATE) [Concomitant]
  4. ACETYLSALICYLIC ACID SRT [Concomitant]
  5. HYDROCHLOROTHIAZIDE [Concomitant]

REACTIONS (2)
  - CORONARY ARTERY THROMBOSIS [None]
  - THROAT IRRITATION [None]
